FAERS Safety Report 14053779 (Version 1)
Quarter: 2017Q4

REPORT INFORMATION
  Report Type: Spontaneous
  Country: US (occurrence: None)
  Receive Date: 20171005
  Receipt Date: 20171005
  Transmission Date: 20180321
  Serious: Yes (Hospitalization)
  Sender: FDA-Public Use
  Company Number: None

PATIENT
  Age: 41 Year
  Sex: Male
  Weight: 150 kg

DRUGS (7)
  1. METOLAZONE. [Concomitant]
     Active Substance: METOLAZONE
  2. APIXABAN 5 MG BRISTOL-MYERS SQUIBB [Suspect]
     Active Substance: APIXABAN
     Indication: DEEP VEIN THROMBOSIS
     Route: 048
     Dates: start: 20170619, end: 20170908
  3. OMEPRAZOLE. [Concomitant]
     Active Substance: OMEPRAZOLE
  4. BENZONATATE. [Concomitant]
     Active Substance: BENZONATATE
  5. ATORVASTATIN [Concomitant]
     Active Substance: ATORVASTATIN
  6. PREDNISONE. [Concomitant]
     Active Substance: PREDNISONE
  7. GABAPENTIN. [Concomitant]
     Active Substance: GABAPENTIN

REACTIONS (3)
  - Acute respiratory failure [None]
  - Fluid overload [None]
  - Cardiac failure [None]

NARRATIVE: CASE EVENT DATE: 20170813
